FAERS Safety Report 18748583 (Version 1)
Quarter: 2021Q1

REPORT INFORMATION
  Report Type: Spontaneous
  Country: US (occurrence: US)
  Receive Date: 20210115
  Receipt Date: 20210115
  Transmission Date: 20210419
  Serious: Yes (Other)
  Sender: FDA-Public Use
  Company Number: US-PFIZER INC-2021018786

PATIENT
  Age: 32 Year
  Sex: Female
  Weight: 68 kg

DRUGS (7)
  1. EPINEPHRINE. [Suspect]
     Active Substance: EPINEPHRINE
     Dosage: 0.3 MG, GIVEN IN THE RIGHT DELTOID
     Route: 030
     Dates: start: 20201215
  2. EPINEPHRINE. [Suspect]
     Active Substance: EPINEPHRINE
     Dosage: RE?STARTED AT 6.8MCG/MIN
     Route: 041
     Dates: start: 20201215
  3. EPINEPHRINE. [Suspect]
     Active Substance: EPINEPHRINE
     Indication: ANAPHYLACTIC REACTION
     Dosage: 0.3 MG, GIVEN IN THE LEFT DELTOID
     Route: 030
     Dates: start: 20201215
  4. EPINEPHRINE. [Suspect]
     Active Substance: EPINEPHRINE
     Dosage: 6.8 MCG/MIN
     Route: 041
     Dates: start: 20201215
  5. EPINEPHRINE. [Suspect]
     Active Substance: EPINEPHRINE
     Dosage: 0.3 MG, EPI IM 2ND DOSE
     Route: 030
     Dates: start: 20201215
  6. EPINEPHRINE. [Suspect]
     Active Substance: EPINEPHRINE
     Dosage: 13.6 MCG/MIN
     Route: 041
     Dates: start: 20201215
  7. EPINEPHRINE. [Suspect]
     Active Substance: EPINEPHRINE
     Dosage: 6.8 MCG/MIN
     Route: 041
     Dates: start: 20201215, end: 20201215

REACTIONS (6)
  - Blood thyroid stimulating hormone increased [Unknown]
  - Tachycardia [Unknown]
  - Hypokalaemia [Unknown]
  - White blood cell count increased [Unknown]
  - Anxiety [Unknown]
  - Hypertension [Unknown]

NARRATIVE: CASE EVENT DATE: 20201215
